FAERS Safety Report 5298706-8 (Version None)
Quarter: 2007Q2

REPORT INFORMATION
  Report Type: 
  Country: None (occurrence: None)
  Receive Date: 20070417
  Receipt Date: 20070404
  Transmission Date: 20071010
  Serious: Yes (Hospitalization)
  Sender: FDA-Public Use
  Company Number: PHHO2007JP06263

PATIENT
  Age: 57 Year
  Sex: Female
  Weight: 70 kg

DRUGS (5)
  1. NORVASC [Concomitant]
     Indication: HYPERTENSION
  2. CARDENALIN [Concomitant]
     Indication: HYPERTENSION
  3. MEVALOTIN [Concomitant]
  4. DIOVAN [Suspect]
     Indication: HYPERTENSION
     Dosage: 40 MG, QD
     Route: 048
     Dates: start: 20030224, end: 20031114
  5. DIOVAN [Suspect]
     Dosage: 80 MG, QD
     Route: 048
     Dates: start: 20031115

REACTIONS (2)
  - CHOLELITHIASIS [None]
  - DUODENAL ULCER [None]
